FAERS Safety Report 9554451 (Version 2)
Quarter: 2013Q3

REPORT INFORMATION
  Report Type: Spontaneous
  Country: US (occurrence: US)
  Receive Date: 20130925
  Receipt Date: 20130925
  Transmission Date: 20140515
  Serious: Yes (Hospitalization)
  Sender: FDA-Public Use
  Company Number: US-ABBVIE-13P-163-1101587-00

PATIENT
  Sex: Female
  Weight: 113.5 kg

DRUGS (13)
  1. HUMIRA [Suspect]
     Indication: CROHN^S DISEASE
     Dates: start: 2011, end: 201302
  2. HUMIRA [Suspect]
     Dates: start: 201305
  3. EFFEXOR [Concomitant]
     Indication: DEPRESSION
  4. CRESTOR [Concomitant]
     Indication: BLOOD CHOLESTEROL
  5. VITAMIN D [Concomitant]
     Indication: VITAMIN D DEFICIENCY
  6. RANITIDINE [Concomitant]
     Indication: GASTROOESOPHAGEAL REFLUX DISEASE
  7. LISINOPRIL HCTZ [Concomitant]
     Indication: BLOOD PRESSURE
  8. METHOTREXATE [Concomitant]
     Indication: CROHN^S DISEASE
  9. FOLIC ACID [Concomitant]
     Indication: CROHN^S DISEASE
  10. CALTRATE [Concomitant]
     Indication: CALCIUM DEFICIENCY
  11. VYVANSE [Concomitant]
     Indication: DISTURBANCE IN ATTENTION
  12. NOVOLOG [Concomitant]
     Indication: DIABETES MELLITUS
  13. LANTUS [Concomitant]
     Indication: DIABETES MELLITUS

REACTIONS (8)
  - Fistula [Recovered/Resolved]
  - Wound [Recovered/Resolved]
  - Impaired healing [Recovered/Resolved]
  - Wound infection [Recovered/Resolved]
  - Dyspnoea [Recovered/Resolved]
  - Abdominal pain [Unknown]
  - Arthralgia [Unknown]
  - Psoriasis [Unknown]
